FAERS Safety Report 8523666 (Version 6)
Quarter: 2013Q2

REPORT INFORMATION
  Report Type: Spontaneous
  Country: US (occurrence: US)
  Receive Date: 20120420
  Receipt Date: 20130419
  Transmission Date: 20140414
  Serious: Yes (Death, Other)
  Sender: FDA-Public Use
  Company Number: US-ABBOTT-12P-163-0926833-00

PATIENT
  Sex: Female
  Weight: 59.02 kg

DRUGS (8)
  1. HUMIRA 40 MG/0.8 ML PEN [Suspect]
     Indication: RHEUMATOID ARTHRITIS
     Route: 058
     Dates: start: 20120110, end: 20120402
  2. LEVOTHYROXINE [Suspect]
     Indication: HYPOTHYROIDISM
     Dosage: DAILY FOR YEARS
  3. METHOTREXATE [Suspect]
     Indication: RHEUMATOID ARTHRITIS
     Dosage: 7.5MG WEEKLY
     Route: 048
     Dates: end: 20120403
  4. RITUXAN [Suspect]
     Indication: RHEUMATOID ARTHRITIS
     Route: 042
     Dates: start: 20110913, end: 20110927
  5. ENBREL [Suspect]
     Indication: RHEUMATOID ARTHRITIS
     Dates: start: 2002, end: 2011
  6. ADVIL [Suspect]
     Indication: RHEUMATOID ARTHRITIS
     Dosage: DAILY FOR YEARS-  PM
  7. FOSAMAX [Suspect]
     Indication: OSTEOPOROSIS
     Dosage: WEEKLY FOR YEARS
  8. FOLIC ACID [Suspect]
     Indication: RHEUMATOID ARTHRITIS
     Dosage: DAILY FOR YEARS

REACTIONS (3)
  - Hepatic failure [Fatal]
  - Acute hepatitis B [Fatal]
  - Influenza like illness [Unknown]
